FAERS Safety Report 7477893-7 (Version None)
Quarter: 2011Q2

REPORT INFORMATION
  Report Type: 
  Country: None (occurrence: None)
  Receive Date: 20110511
  Receipt Date: 20110511
  Transmission Date: 20111010
  Serious: Yes (Other)
  Sender: FDA-Public Use
  Company Number: None

PATIENT
  Weight: 68.2 kg

DRUGS (1)
  1. ZYCLARA [Suspect]
     Indication: ACTINIC KERATOSIS
     Dosage: ZYCLARA 3.75 % CREAM DAILY TOPICAL
     Route: 061
     Dates: start: 20100605, end: 20100715

REACTIONS (2)
  - RASH ERYTHEMATOUS [None]
  - PRURITUS [None]
